FAERS Safety Report 12399070 (Version 1)
Quarter: 2016Q2

REPORT INFORMATION
  Report Type: Spontaneous
  Country: FI (occurrence: FI)
  Receive Date: 20160524
  Receipt Date: 20160524
  Transmission Date: 20160815
  Serious: Yes (Disabling)
  Sender: FDA-Public Use
  Company Number: FI-PFIZER INC-2016267751

PATIENT
  Age: 23 Year
  Sex: Female

DRUGS (1)
  1. TREXAN [Suspect]
     Active Substance: METHOTREXATE SODIUM
     Dosage: 10 MG, WEEKLY (1.4286 MG (10 MG,1 IN 1 W))
     Route: 048

REACTIONS (2)
  - Musculoskeletal stiffness [Not Recovered/Not Resolved]
  - Neck pain [Not Recovered/Not Resolved]
